FAERS Safety Report 12056367 (Version 1)
Quarter: 2016Q1

REPORT INFORMATION
  Report Type: Report from Study
  Country: US (occurrence: US)
  Receive Date: 20160209
  Receipt Date: 20160209
  Transmission Date: 20160526
  Serious: No
  Sender: FDA-Public Use
  Company Number: US-ABBVIE-15P-163-1473185-00

PATIENT
  Age: 58 Year
  Sex: Male

DRUGS (1)
  1. HUMIRA [Suspect]
     Active Substance: ADALIMUMAB
     Indication: RHEUMATOID ARTHRITIS
     Route: 065

REACTIONS (5)
  - Axillary mass [Recovering/Resolving]
  - Staphylococcal infection [Unknown]
  - Skin burning sensation [Unknown]
  - Abscess drainage [Unknown]
  - Discomfort [Unknown]

NARRATIVE: CASE EVENT DATE: 2015
